FAERS Safety Report 9311561 (Version 3)
Quarter: 2013Q3

REPORT INFORMATION
  Report Type: Spontaneous
  Country: JP (occurrence: JP)
  Receive Date: 20130528
  Receipt Date: 20130828
  Transmission Date: 20140515
  Serious: Yes (Death, Other)
  Sender: FDA-Public Use
  Company Number: JP-PFIZER INC-2013134867

PATIENT
  Age: 62 Year
  Sex: Male

DRUGS (9)
  1. ANCARON [Suspect]
     Indication: VENTRICULAR TACHYCARDIA
     Dosage: 100 MG, TWICE A DAY
     Route: 048
     Dates: start: 200011, end: 201301
  2. ANCARON [Suspect]
     Indication: ARRHYTHMIA
  3. SOTACOR [Concomitant]
     Indication: VENTRICULAR TACHYCARDIA
     Dosage: UNK
     Dates: start: 201108
  4. PREDONINE [Concomitant]
     Dosage: UNK
  5. CRESTOR [Concomitant]
     Dosage: UNK
  6. RENIVACE [Concomitant]
     Dosage: UNK
  7. DIART [Concomitant]
     Dosage: UNK
  8. PARIET [Concomitant]
     Dosage: UNK
  9. ARTIST [Concomitant]
     Dosage: UNK

REACTIONS (3)
  - Hepatic cirrhosis [Fatal]
  - Renal failure acute [Fatal]
  - Non-alcoholic steatohepatitis [Unknown]
